FAERS Safety Report 9557030 (Version 1)
Quarter: 2013Q3

REPORT INFORMATION
  Report Type: Spontaneous
  Country: US (occurrence: None)
  Receive Date: 20130726
  Receipt Date: 20130726
  Transmission Date: 20140515
  Serious: Yes (Hospitalization)
  Sender: FDA-Public Use
  Company Number: UTC-025554

PATIENT
  Age: 62 Year
  Sex: Female
  Weight: 80.9 kg

DRUGS (1)
  1. REMODULIN [Suspect]
     Indication: COR PULMONALE CHRONIC
     Dosage: 72 UG/KG (0.05 UG/KG, 1 IN 1 MIN), SUBCUTANEOUS
     Dates: start: 20120107

REACTIONS (3)
  - Hypotension [None]
  - Asthenia [None]
  - Nausea [None]
